FAERS Safety Report 8189708-2 (Version None)
Quarter: 2012Q1

REPORT INFORMATION
  Report Type: 
  Country: None (occurrence: None)
  Receive Date: 20120221
  Receipt Date: 20120118
  Transmission Date: 20120608
  Serious: No
  Sender: FDA-Public Use
  Company Number: 1000027209

PATIENT
  Age: 51 Year
  Sex: Female

DRUGS (2)
  1. VIIBRYD [Suspect]
     Indication: DEPRESSION
     Dosage: 10 MG (10 MG,1 IN 1 D),ORAL
     Route: 048
     Dates: start: 20120115
  2. DESIPRAMINE (DESIPRAMINE) (DESIPRAMINE) [Concomitant]

REACTIONS (2)
  - NAUSEA [None]
  - CONSTIPATION [None]
